FAERS Safety Report 20511409 (Version 1)
Quarter: 2022Q1

REPORT INFORMATION
  Report Type: Spontaneous
  Country: US (occurrence: None)
  Receive Date: 20220223
  Receipt Date: 20220223
  Transmission Date: 20220424
  Serious: Yes (Hospitalization)
  Sender: FDA-Public Use
  Company Number: None

PATIENT
  Age: 50 Year
  Sex: Male

DRUGS (3)
  1. OPSUMIT [Suspect]
     Active Substance: MACITENTAN
     Indication: Pulmonary arterial hypertension
     Dosage: FREQUENCY : DAILY;?
     Route: 048
     Dates: start: 20200131
  2. SILDENAFIL [Concomitant]
  3. FUROSEMIDE [Concomitant]

REACTIONS (4)
  - Dizziness [None]
  - Dyspnoea [None]
  - Oedema peripheral [None]
  - Hypervolaemia [None]

NARRATIVE: CASE EVENT DATE: 20220218
